FAERS Safety Report 5199977-9 (Version None)
Quarter: 2007Q1

REPORT INFORMATION
  Report Type: 
  Country: None (occurrence: None)
  Receive Date: 20070105
  Receipt Date: 20061227
  Transmission Date: 20070707
  Serious: Yes (Hospitalization)
  Sender: FDA-Public Use
  Company Number: 2006SE06837

PATIENT
  Age: 76 Year
  Sex: Male

DRUGS (10)
  1. KENZEN 8 MG [Suspect]
     Indication: HYPERTENSIVE HEART DISEASE
     Route: 048
     Dates: end: 20060802
  2. ASPIRIN [Interacting]
     Indication: TRANSIENT ISCHAEMIC ATTACK
     Route: 048
  3. LASIX [Interacting]
     Indication: HYPERTENSIVE HEART DISEASE
     Route: 048
  4. HYPERIUM [Interacting]
     Indication: HYPERTENSIVE HEART DISEASE
     Route: 048
     Dates: end: 20060801
  5. DOXAZOSIN MESYLATE [Interacting]
     Indication: PROSTATE CANCER
     Route: 048
     Dates: end: 20060802
  6. ALDACTONE [Interacting]
     Indication: HYPERTENSIVE HEART DISEASE
     Route: 048
     Dates: end: 20060802
  7. DIFFU K [Interacting]
     Indication: HYPOKALAEMIA
     Route: 048
     Dates: end: 20060802
  8. ALLOPURINOL SODIUM [Concomitant]
     Indication: HYPERURICAEMIA
     Route: 048
     Dates: end: 20060802
  9. OMEPRAZOLE [Concomitant]
     Indication: PROPHYLAXIS
     Route: 048
  10. STABLON [Concomitant]
     Indication: DEPRESSION
     Route: 048

REACTIONS (8)
  - ASTHENIA [None]
  - DEHYDRATION [None]
  - DRUG INTERACTION [None]
  - HAEMOGLOBIN DECREASED [None]
  - HYPERKALAEMIA [None]
  - HYPOKALAEMIA [None]
  - HYPOTENSION [None]
  - RENAL FAILURE ACUTE [None]
